FAERS Safety Report 14826885 (Version 1)
Quarter: 2018Q2

REPORT INFORMATION
  Report Type: Spontaneous
  Country: US (occurrence: US)
  Receive Date: 20180430
  Receipt Date: 20180430
  Transmission Date: 20180711
  Serious: No
  Sender: FDA-Public Use
  Company Number: US-TEVA-2018-US-867959

PATIENT

DRUGS (1)
  1. ESTRADIOL. [Suspect]
     Active Substance: ESTRADIOL

REACTIONS (5)
  - Product blister packaging issue [Unknown]
  - Device malfunction [Unknown]
  - Product use complaint [Unknown]
  - Incorrect dosage administered [Unknown]
  - Vulvovaginal dryness [Unknown]
